FAERS Safety Report 8785824 (Version 1)
Quarter: 2012Q4

REPORT INFORMATION
  Report Type: 
  Country: ES (occurrence: ES)
  Receive Date: 20120914
  Receipt Date: 20120914
  Transmission Date: 20130627
  Serious: Yes (Other)
  Sender: FDA-Public Use
  Company Number: ES-ROXANE LABORATORIES, INC.-2012-RO-01837RO

PATIENT
  Age: 65 Year
  Sex: Female

DRUGS (3)
  1. ROPINIROLE [Suspect]
     Indication: PARKINSON^S DISEASE
     Dosage: 15 mg
  2. CARBIDOPA\ENTACAPONE\LEVODOPA [Suspect]
     Indication: PARKINSON^S DISEASE
  3. RASAGILINE [Suspect]
     Indication: PARKINSON^S DISEASE

REACTIONS (1)
  - Pleurothotonus [Recovered/Resolved]
